FAERS Safety Report 8485534 (Version 6)
Quarter: 2014Q2

REPORT INFORMATION
  Report Type: Report from Study
  Country: RU (occurrence: RU)
  Receive Date: 20120330
  Receipt Date: 20140409
  Transmission Date: 20141212
  Serious: Yes (Death, Hospitalization)
  Sender: FDA-Public Use
  Company Number: RU-CELGENEUS-251-21880-12012578

PATIENT
  Age: 61 Year
  Sex: Male
  Weight: 108 kg

DRUGS (9)
  1. REVLIMID [Suspect]
     Indication: PLASMA CELL MYELOMA
     Route: 048
     Dates: start: 20111219, end: 20120108
  2. REVLIMID [Suspect]
     Route: 048
     Dates: start: 20120116, end: 20120205
  3. DEXAMETHASONE [Suspect]
     Indication: PLASMA CELL MYELOMA
     Route: 065
     Dates: start: 20111219, end: 20120206
  4. ASPIRINE [Concomitant]
     Indication: ANTICOAGULANT THERAPY
     Dosage: 100 MILLIGRAM
     Route: 048
     Dates: start: 20111218, end: 20120202
  5. ASPIRINE [Concomitant]
     Indication: ANTIPLATELET THERAPY
  6. CIPROFLOXACINE [Concomitant]
     Indication: ANTIBIOTIC PROPHYLAXIS
     Route: 048
     Dates: start: 20111218, end: 20120115
  7. CIPROFLOXACINE [Concomitant]
     Indication: SINUSITIS
     Dosage: 800 MILLIGRAM
     Route: 041
     Dates: start: 20120116, end: 20120206
  8. LANSOPTOL [Concomitant]
     Indication: PRODUCT USED FOR UNKNOWN INDICATION
     Dosage: 30 MILLIGRAM
     Route: 048
     Dates: start: 20111218, end: 20120212
  9. ZOMETA [Concomitant]
     Indication: PROPHYLAXIS
     Route: 041
     Dates: start: 20111217, end: 20120116

REACTIONS (2)
  - Myelodysplastic syndrome [Fatal]
  - Sinusitis [Recovered/Resolved]
